FAERS Safety Report 9637768 (Version 1)
Quarter: 2013Q4

REPORT INFORMATION
  Report Type: Spontaneous
  Country: BR (occurrence: BR)
  Receive Date: 20131022
  Receipt Date: 20131022
  Transmission Date: 20140711
  Serious: Yes (Hospitalization)
  Sender: FDA-Public Use
  Company Number: BR-PFIZER INC-2013300207

PATIENT
  Age: 68 Year
  Sex: Male

DRUGS (1)
  1. ATENOLOL [Suspect]
     Dosage: UNK
     Route: 065
     Dates: start: 1981

REACTIONS (1)
  - Myocardial infarction [Recovered/Resolved]
